FAERS Safety Report 6751655-8 (Version None)
Quarter: 2010Q2

REPORT INFORMATION
  Report Type: 
  Country: None (occurrence: None)
  Receive Date: 20100602
  Receipt Date: 20100524
  Transmission Date: 20101027
  Serious: Yes (Death)
  Sender: FDA-Public Use
  Company Number: A0861053A

PATIENT
  Age: 67 Year
  Sex: Male

DRUGS (3)
  1. ARIXTRA [Suspect]
     Dosage: 7.5MG PER DAY
     Route: 058
     Dates: start: 20100429
  2. CHEMOTHERAPY [Concomitant]
  3. RADIATION [Concomitant]

REACTIONS (2)
  - ADVERSE EVENT [None]
  - NEOPLASM MALIGNANT [None]
